FAERS Safety Report 14432769 (Version 11)
Quarter: 2018Q3

REPORT INFORMATION
  Report Type: Spontaneous
  Country: US (occurrence: US)
  Receive Date: 20180124
  Receipt Date: 20180824
  Transmission Date: 20181010
  Serious: Yes (Other)
  Sender: FDA-Public Use
  Company Number: US-PFIZER INC-2018028974

PATIENT
  Age: 63 Year
  Sex: Male
  Weight: 81.81 kg

DRUGS (15)
  1. COLACE [Concomitant]
     Active Substance: DOCUSATE SODIUM
     Dosage: UNK
  2. NORVASC [Concomitant]
     Active Substance: AMLODIPINE BESYLATE
     Indication: BLOOD PRESSURE ABNORMAL
     Dosage: UNK
  3. HYDROCHLOROTHIAZIDE. [Concomitant]
     Active Substance: HYDROCHLOROTHIAZIDE
     Dosage: 25 MG, UNK
  4. PEPCID [Concomitant]
     Active Substance: FAMOTIDINE
     Dosage: UNK UNK, AS NEEDED
  5. HYDROCHLOROTHIAZIDE. [Concomitant]
     Active Substance: HYDROCHLOROTHIAZIDE
     Dosage: 12.5 MG, UNK
  6. CARVEDILOL. [Concomitant]
     Active Substance: CARVEDILOL
     Dosage: UNK, AS NEEDED
  7. HYDROCHLOROTHIAZIDE. [Concomitant]
     Active Substance: HYDROCHLOROTHIAZIDE
     Dosage: 50 MG, UNK
  8. AMLODIPINE [Concomitant]
     Active Substance: AMLODIPINE BESYLATE
     Dosage: UNK
  9. POTASSIUM [Concomitant]
     Active Substance: POTASSIUM
     Dosage: UNK
  10. ALUMINUM HYDROXIDE GEL [Concomitant]
     Active Substance: ALGELDRATE
     Dosage: UNK
  11. SUTENT [Suspect]
     Active Substance: SUNITINIB MALATE
     Indication: GASTROINTESTINAL STROMAL TUMOUR
     Dosage: 50 MG, CYCLIC (28 DAYS ON/14 DAYS OFF)
     Dates: start: 20171205, end: 20180814
  12. LISINOPRIL. [Concomitant]
     Active Substance: LISINOPRIL
     Dosage: UNK
  13. LACTULOSE. [Concomitant]
     Active Substance: LACTULOSE
     Dosage: UNK UNK, AS NEEDED
  14. DILTIAZEM. [Concomitant]
     Active Substance: DILTIAZEM
     Dosage: UNK
  15. PHENERGAN [Concomitant]
     Active Substance: PROMETHAZINE HYDROCHLORIDE
     Dosage: UNK

REACTIONS (31)
  - Constipation [Unknown]
  - Yellow skin [Unknown]
  - Malaise [Unknown]
  - Prostatic specific antigen increased [Unknown]
  - Neoplasm progression [Unknown]
  - Nausea [Recovering/Resolving]
  - Ageusia [Unknown]
  - Speech disorder [Unknown]
  - Flushing [Unknown]
  - Epistaxis [Unknown]
  - Weight fluctuation [Unknown]
  - Platelet count decreased [Recovering/Resolving]
  - Fatigue [Recovering/Resolving]
  - Gait disturbance [Unknown]
  - Eye swelling [Unknown]
  - Blood pressure fluctuation [Unknown]
  - Dyspepsia [Not Recovered/Not Resolved]
  - Blood pressure increased [Not Recovered/Not Resolved]
  - Cardiomyopathy [Unknown]
  - Dysgeusia [Unknown]
  - Appetite disorder [Recovering/Resolving]
  - Diarrhoea [Unknown]
  - Swollen tongue [Unknown]
  - Dysphagia [Unknown]
  - Nail injury [Unknown]
  - Vomiting [Recovering/Resolving]
  - Pain in extremity [Unknown]
  - Gastric disorder [Unknown]
  - Pharyngeal oedema [Unknown]
  - Blood potassium decreased [Unknown]
  - Stomatitis [Unknown]
